FAERS Safety Report 6411145-9 (Version None)
Quarter: 2009Q4

REPORT INFORMATION
  Report Type: 
  Country: None (occurrence: None)
  Receive Date: 20091022
  Receipt Date: 20091012
  Transmission Date: 20100525
  Serious: Yes (Death)
  Sender: FDA-Public Use
  Company Number: US-PFIZER INC-2009244324

PATIENT
  Age: 39 Year
  Sex: Female

DRUGS (3)
  1. XANAX [Suspect]
  2. PAXIL [Suspect]
  3. FENTANYL [Suspect]

REACTIONS (1)
  - DRUG TOXICITY [None]
